FAERS Safety Report 4996237-3 (Version None)
Quarter: 2006Q2

REPORT INFORMATION
  Report Type: 
  Country: None (occurrence: None)
  Receive Date: 20060505
  Receipt Date: 20060426
  Transmission Date: 20061013
  Serious: Yes (Other)
  Sender: FDA-Public Use
  Company Number: 2006BI002099

PATIENT
  Age: 43 Year
  Sex: Female
  Weight: 52 kg

DRUGS (3)
  1. AVONEX [Suspect]
     Indication: MULTIPLE SCLEROSIS
     Dosage: 30 UG;QW;IM
     Route: 030
     Dates: start: 20051210, end: 20060101
  2. IBUPROFEN [Concomitant]
  3. GABAPENTIN [Concomitant]

REACTIONS (5)
  - BLOOD CHOLINESTERASE DECREASED [None]
  - BLOOD THROMBOPLASTIN DECREASED [None]
  - COMPLEMENT FACTOR C4 DECREASED [None]
  - HEPATITIS [None]
  - HEPATOTOXICITY [None]
